FAERS Safety Report 9199654 (Version 3)
Quarter: 2014Q1

REPORT INFORMATION
  Report Type: Report from Study
  Country: US (occurrence: US)
  Receive Date: 20130329
  Receipt Date: 20140312
  Transmission Date: 20141002
  Serious: Yes (Hospitalization, Other)
  Sender: FDA-Public Use
  Company Number: US-ALEXION-A201300262

PATIENT
  Age: 80 Year
  Sex: Male

DRUGS (1)
  1. SOLIRIS [Suspect]
     Indication: PAROXYSMAL NOCTURNAL HAEMOGLOBINURIA
     Dosage: UNK Q2W
     Route: 042

REACTIONS (4)
  - Confusional state [Not Recovered/Not Resolved]
  - Hernia [Not Recovered/Not Resolved]
  - Procedural complication [Not Recovered/Not Resolved]
  - Abdominal pain [Not Recovered/Not Resolved]
